FAERS Safety Report 5227543-5 (Version None)
Quarter: 2007Q1

REPORT INFORMATION
  Report Type: 
  Country: None (occurrence: None)
  Receive Date: 20061201
  Receipt Date: 20061012
  Transmission Date: 20070707
  Serious: No
  Sender: FDA-Public Use
  Company Number: US200610002381

PATIENT
  Sex: Male

DRUGS (4)
  1. CYMBALTA [Suspect]
     Indication: DEPRESSION
     Dosage: 20 MG, DAILY (1/D), ORAL
     Route: 048
     Dates: start: 20061001
  2. DESIPRAMINE HCL [Concomitant]
  3. LORAZEPAM [Concomitant]
  4. MICARDIS [Concomitant]

REACTIONS (4)
  - ORTHOSTATIC HYPERTENSION [None]
  - SEDATION [None]
  - THINKING ABNORMAL [None]
  - URINARY HESITATION [None]
